FAERS Safety Report 6883840-9 (Version None)
Quarter: 2010Q3

REPORT INFORMATION
  Report Type: 
  Country: None (occurrence: None)
  Receive Date: 20100729
  Receipt Date: 20100719
  Transmission Date: 20110219
  Serious: Yes (Other)
  Sender: FDA-Public Use
  Company Number: US-BAXTER-2010BH019220

PATIENT
  Age: 65 Year
  Sex: Male

DRUGS (3)
  1. ENDOXAN BAXTER [Suspect]
     Indication: PROSTATE CANCER
     Route: 065
  2. METHOTREXATE [Suspect]
     Indication: PROSTATE CANCER
     Route: 065
  3. ADRIAMYCIN PFS [Suspect]
     Indication: PROSTATE CANCER
     Route: 065

REACTIONS (2)
  - MALIGNANT NEOPLASM PROGRESSION [None]
  - PROSTATE CANCER [None]
